FAERS Safety Report 6941993-8 (Version None)
Quarter: 2010Q3

REPORT INFORMATION
  Report Type: 
  Country: None (occurrence: None)
  Receive Date: 20100826
  Receipt Date: 20100823
  Transmission Date: 20110219
  Serious: Yes (Death, Hospitalization)
  Sender: FDA-Public Use
  Company Number: PHHY2010MX28748

PATIENT
  Sex: Male

DRUGS (1)
  1. ZOMETA [Suspect]
     Indication: PROSTATE CANCER
     Dosage: 4 MG, QMO
     Route: 042
     Dates: start: 20080301, end: 20100301

REACTIONS (4)
  - ASTHENIA [None]
  - MALIGNANT NEOPLASM PROGRESSION [None]
  - PARKINSON'S DISEASE [None]
  - RENAL FAILURE [None]
